FAERS Safety Report 17045289 (Version 1)
Quarter: 2019Q4

REPORT INFORMATION
  Report Type: Spontaneous
  Country: US (occurrence: US)
  Receive Date: 20191118
  Receipt Date: 20191118
  Transmission Date: 20200122
  Serious: No
  Sender: FDA-Public Use
  Company Number: US-ENDO PHARMACEUTICALS INC-2019-102492

PATIENT
  Sex: Male
  Weight: 143.3 kg

DRUGS (2)
  1. ALPRAZOLAM. [Suspect]
     Active Substance: ALPRAZOLAM
     Indication: SEIZURE
  2. ALPRAZOLAM. [Suspect]
     Active Substance: ALPRAZOLAM
     Indication: ANXIETY DISORDER
     Dosage: 1 TABLET EVERY 6 HOURS AS NEEDED
     Route: 048

REACTIONS (7)
  - Off label use [Unknown]
  - Malaise [Unknown]
  - Dyspnoea [Unknown]
  - Product physical issue [Unknown]
  - Feeling hot [Unknown]
  - Urticaria [Unknown]
  - Product substitution issue [Unknown]
